FAERS Safety Report 10405829 (Version 1)
Quarter: 2014Q3

REPORT INFORMATION
  Report Type: Spontaneous
  Country: US (occurrence: None)
  Receive Date: 20140821
  Receipt Date: 20140821
  Transmission Date: 20150326
  Serious: Yes (Life-Threatening, Hospitalization)
  Sender: FDA-Public Use
  Company Number: 2014-0003

PATIENT
  Age: 18 Month
  Sex: Male

DRUGS (6)
  1. KETAMINE [Concomitant]
     Active Substance: KETAMINE
  2. MEFENAMIC ACID. [Concomitant]
     Active Substance: MEFENAMIC ACID
  3. IMIPRAMINE [Concomitant]
     Active Substance: IMIPRAMINE
  4. GABAPENTIN. [Suspect]
     Active Substance: GABAPENTIN
     Indication: PAIN MANAGEMENT
     Route: 062
  5. CLONIDINE. [Concomitant]
     Active Substance: CLONIDINE
  6. LIDOCAINE. [Concomitant]
     Active Substance: LIDOCAINE

REACTIONS (6)
  - Dyspnoea [None]
  - Hyporeflexia [None]
  - Mental status changes [None]
  - Unresponsive to stimuli [None]
  - Miosis [None]
  - Toxicity to various agents [None]
